FAERS Safety Report 8833789 (Version 2)
Quarter: 2012Q4

REPORT INFORMATION
  Report Type: Spontaneous
  Country: US (occurrence: None)
  Receive Date: 20121010
  Receipt Date: 20121016
  Transmission Date: 20130627
  Serious: Yes (Hospitalization)
  Sender: FDA-Public Use
  Company Number: 2012033510

PATIENT
  Age: 20 Year
  Sex: Female

DRUGS (2)
  1. BERINERT [Suspect]
     Indication: HEREDITARY ANGIOEDEMA
     Route: 042
     Dates: start: 20111227
  2. BERINERT [Suspect]
     Indication: HEREDITARY ANGIOEDEMA

REACTIONS (3)
  - Drug ineffective for unapproved indication [None]
  - Hereditary angioedema [None]
  - Condition aggravated [None]
